FAERS Safety Report 14404917 (Version 4)
Quarter: 2018Q1

REPORT INFORMATION
  Report Type: Spontaneous
  Country: CH (occurrence: CH)
  Receive Date: 20180118
  Receipt Date: 20180225
  Transmission Date: 20180509
  Serious: Yes (Other)
  Sender: FDA-Public Use
  Company Number: CH-ABBVIE-18K-151-2225345-00

PATIENT
  Age: 30 Year
  Sex: Female

DRUGS (1)
  1. HUMIRA [Suspect]
     Active Substance: ADALIMUMAB
     Indication: POLYARTHRITIS
     Route: 058
     Dates: start: 2017

REACTIONS (11)
  - Cortisol increased [Unknown]
  - Depression [Unknown]
  - Suicidal ideation [Unknown]
  - Arthralgia [Recovered/Resolved]
  - Joint swelling [Unknown]
  - Nervousness [Unknown]
  - Stress [Unknown]
  - Drug effect incomplete [Unknown]
  - Joint swelling [Recovered/Resolved]
  - Adjustment disorder [Unknown]
  - Arthralgia [Unknown]
